FAERS Safety Report 5145059-1 (Version None)
Quarter: 2006Q4

REPORT INFORMATION
  Report Type: 
  Country: None (occurrence: None)
  Receive Date: 20061107
  Receipt Date: 20050906
  Transmission Date: 20070319
  Serious: Yes (Other)
  Sender: FDA-Public Use
  Company Number: US-MERCK-0509USA00493

PATIENT
  Age: 52 Year
  Sex: Female

DRUGS (2)
  1. FOSAMAX [Suspect]
     Indication: OSTEOPOROSIS
     Route: 048
     Dates: start: 20050101
  2. FOSAMAX [Suspect]
     Indication: OSTEOPENIA
     Route: 048
     Dates: start: 20050101

REACTIONS (4)
  - DRUG ADMINISTRATION ERROR [None]
  - EPIGLOTTIS ULCER [None]
  - LARYNGITIS [None]
  - VOCAL CORD POLYP [None]
